FAERS Safety Report 8609952-7 (Version None)
Quarter: 2012Q3

REPORT INFORMATION
  Report Type: 
  Country: None (occurrence: None)
  Receive Date: 20120821
  Receipt Date: 20120808
  Transmission Date: 20120928
  Serious: Yes (Other)
  Sender: FDA-Public Use
  Company Number: US-MYLANLABS-2012S1016417

PATIENT
  Age: 69 Year
  Sex: Male

DRUGS (7)
  1. LORAZEPAM [Suspect]
     Dosage: AS NEEDED; UP TO 4MG EVERY 15-30 MINUTES
     Route: 065
  2. FOLIC ACID [Concomitant]
     Indication: PROPHYLAXIS
     Dosage: 1MG QD
     Route: 042
  3. LORAZEPAM [Suspect]
     Indication: ALCOHOL WITHDRAWAL SYNDROME
     Dosage: AS NEEDED; 2MG EVERY 2-3 HOURS
     Route: 065
  4. LORAZEPAM [Suspect]
     Dosage: INFUSION; 2 MG/HOUR
     Route: 065
  5. PHENYTOIN [Concomitant]
     Indication: CONVULSION PROPHYLAXIS
     Dosage: 100MG EVERY 8 HOURS
     Route: 065
  6. THIAMIN HCL TAB [Concomitant]
     Indication: PROPHYLAXIS
     Dosage: 100MG QD
     Route: 042
  7. PROPRANOLOL [Concomitant]
     Indication: ATRIAL FIBRILLATION
     Dosage: VIA NASOGASTRIC TUBE
     Route: 045

REACTIONS (3)
  - DEPRESSED LEVEL OF CONSCIOUSNESS [None]
  - RESPIRATORY DEPRESSION [None]
  - NEUROLOGICAL DECOMPENSATION [None]
